FAERS Safety Report 7546549-4 (Version None)
Quarter: 2011Q2

REPORT INFORMATION
  Report Type: 
  Country: None (occurrence: None)
  Receive Date: 20110614
  Receipt Date: 20110607
  Transmission Date: 20111010
  Serious: Yes (Hospitalization)
  Sender: FDA-Public Use
  Company Number: US-B.I. PHARMACEUTICALS,INC./RIDGEFIELD-2011-BP-14907BP

PATIENT
  Age: 78 Year
  Sex: Male

DRUGS (2)
  1. PRADAXA [Suspect]
     Indication: ATRIAL FIBRILLATION
     Dosage: 300 MG
     Route: 048
     Dates: start: 20101201
  2. ASPIRIN [Concomitant]

REACTIONS (9)
  - ASTHENIA [None]
  - HYPERTENSION [None]
  - MUSCLE SPASMS [None]
  - FEELING ABNORMAL [None]
  - DYSARTHRIA [None]
  - CEREBROVASCULAR ACCIDENT [None]
  - COUGH [None]
  - CONTUSION [None]
  - DYSPNOEA [None]
